FAERS Safety Report 22143412 (Version 1)
Quarter: 2023Q1

REPORT INFORMATION
  Report Type: Spontaneous
  Country: DE (occurrence: DE)
  Receive Date: 20230327
  Receipt Date: 20230327
  Transmission Date: 20230418
  Serious: Yes (Other)
  Sender: FDA-Public Use
  Company Number: DE-ELI_LILLY_AND_COMPANY-DE202303003224

PATIENT
  Age: 68 Year
  Sex: Female

DRUGS (3)
  1. PEMETREXED [Suspect]
     Active Substance: PEMETREXED
     Indication: Product used for unknown indication
     Dosage: UNK, UNK UNK, UNKNOWN
     Route: 065
     Dates: start: 202103, end: 202105
  2. PEMETREXED [Suspect]
     Active Substance: PEMETREXED
     Dosage: UNK, UNK UNK, UNKNOWN
     Route: 065
     Dates: start: 202106, end: 202203
  3. CARBOPLATIN [Concomitant]
     Active Substance: CARBOPLATIN
     Indication: Product used for unknown indication
     Dosage: UNK, (UNK)
     Route: 065
     Dates: start: 202103, end: 202105

REACTIONS (1)
  - Malignant neoplasm progression [Unknown]

NARRATIVE: CASE EVENT DATE: 20220301
